FAERS Safety Report 7644283-3 (Version None)
Quarter: 2011Q3

REPORT INFORMATION
  Report Type: 
  Country: None (occurrence: None)
  Receive Date: 20110729
  Receipt Date: 20110722
  Transmission Date: 20111222
  Serious: Yes (Other)
  Sender: FDA-Public Use
  Company Number: PHHY2011US43452

PATIENT
  Sex: Female

DRUGS (2)
  1. EXJADE [Suspect]
     Dosage: 1000 MG, QD
     Route: 048
     Dates: start: 20060301
  2. EXJADE [Suspect]
     Dosage: 100 MG, QD
     Route: 048

REACTIONS (3)
  - MALAISE [None]
  - DYSPNOEA [None]
  - BRONCHITIS [None]
